FAERS Safety Report 12408683 (Version 2)
Quarter: 2016Q2

REPORT INFORMATION
  Report Type: Spontaneous
  Country: IN (occurrence: IN)
  Receive Date: 20160526
  Receipt Date: 20160530
  Transmission Date: 20160815
  Serious: Yes (Hospitalization, Other)
  Sender: FDA-Public Use
  Company Number: IN-MYLANLABS-2016M1021061

PATIENT

DRUGS (2)
  1. BUDESONIDE. [Suspect]
     Active Substance: BUDESONIDE
     Indication: SILICOSIS
     Dosage: UNK
     Route: 050
  2. FORMOTEROL [Concomitant]
     Active Substance: FORMOTEROL
     Indication: SILICOSIS
     Route: 065

REACTIONS (5)
  - Postoperative wound complication [Unknown]
  - Meconium stain [Unknown]
  - Oligohydramnios [Recovered/Resolved]
  - Dyspnoea [Unknown]
  - Maternal exposure during pregnancy [Recovered/Resolved]
